FAERS Safety Report 23698266 (Version 2)
Quarter: 2024Q2

REPORT INFORMATION
  Report Type: Spontaneous
  Country: US (occurrence: US)
  Receive Date: 20240402
  Receipt Date: 20240402
  Transmission Date: 20240716
  Serious: No
  Sender: FDA-Public Use
  Company Number: US-THEA-2023002079

PATIENT
  Age: 79 Year
  Sex: Female

DRUGS (2)
  1. COSOPT PF [Suspect]
     Active Substance: DORZOLAMIDE HYDROCHLORIDE\TIMOLOL MALEATE
     Indication: Glaucoma
     Route: 047
     Dates: start: 20231120, end: 202311
  2. ZIOPTAN [Suspect]
     Active Substance: TAFLUPROST
     Indication: Glaucoma
     Route: 047

REACTIONS (3)
  - Eye irritation [Recovered/Resolved]
  - Eye pruritus [Recovered/Resolved]
  - Eye swelling [Recovered/Resolved]

NARRATIVE: CASE EVENT DATE: 20231120
